FAERS Safety Report 7786383-3 (Version None)
Quarter: 2011Q3

REPORT INFORMATION
  Report Type: 
  Country: None (occurrence: None)
  Receive Date: 20110929
  Receipt Date: 20110928
  Transmission Date: 20111222
  Serious: Yes (Life-Threatening, Hospitalization, Other)
  Sender: FDA-Public Use
  Company Number: PHHY2011BR77785

PATIENT
  Age: 23 Year
  Sex: Female

DRUGS (2)
  1. GLEEVEC [Suspect]
     Indication: CHRONIC MYELOID LEUKAEMIA
     Dosage: 400 MG, UNK
     Route: 048
     Dates: start: 20100601
  2. CONTRACEPTIVES [Concomitant]
     Dosage: UNK UKN, UNK
     Route: 065

REACTIONS (2)
  - ACUTE HEPATIC FAILURE [None]
  - TERMINAL STATE [None]
